FAERS Safety Report 23805119 (Version 2)
Quarter: 2024Q2

REPORT INFORMATION
  Report Type: Spontaneous
  Country: GB (occurrence: GB)
  Receive Date: 20240502
  Receipt Date: 20240509
  Transmission Date: 20240716
  Serious: Yes (Hospitalization, Other)
  Sender: FDA-Public Use
  Company Number: None

PATIENT
  Age: 62 Year
  Sex: Female
  Weight: 106 kg

DRUGS (17)
  1. EZETIMIBE [Suspect]
     Active Substance: EZETIMIBE
     Indication: Product used for unknown indication
     Dosage: 1 DOSAGE FORM, QD, (1 DAY), TABLET, (EACH MORNING 7X10MG IN MDS)
     Route: 048
  2. LANSOPRAZOLE [Suspect]
     Active Substance: LANSOPRAZOLE
     Indication: Product used for unknown indication
     Dosage: 1 DOSAGE FORM, COATED TABLET, QD (1 DAY), (EACH MORNING 7X30MG IN MDS)
     Route: 048
  3. METFORMIN HYDROCHLORIDE [Suspect]
     Active Substance: METFORMIN HYDROCHLORIDE
     Indication: Product used for unknown indication
     Dosage: UNK
     Route: 065
  4. AMISULPRIDE [Suspect]
     Active Substance: AMISULPRIDE
     Indication: Product used for unknown indication
     Dosage: 1 DOSAGE FORM, QD (1 DAY), TABLET (EACH MORNING 7X200MG IN MDS)
     Route: 048
  5. ASPIRIN [Suspect]
     Active Substance: ASPIRIN
     Indication: Product used for unknown indication
     Dosage: 1 DOSAGE FORM, QD (1 DAY), GASTRO-RESISTANT TABLET, (EACH MORNING 7X75MG IN MDS)
     Route: 048
  6. CLOZAPINE [Suspect]
     Active Substance: CLOZAPINE
     Indication: Schizophrenia
     Dosage: 2 DOSAGE FORM, QD, TABLET, (AT BEDTIME 14X25MG IN MDS)
     Route: 048
  7. CLOZAPINE [Suspect]
     Active Substance: CLOZAPINE
     Dosage: 3 DOSAGE FORM, QD, TABLET, (EACH MORNING 21X25MG IN MDS)
     Route: 048
  8. CLOZAPINE [Suspect]
     Active Substance: CLOZAPINE
     Dosage: UNK, TABLET
     Route: 048
     Dates: start: 20150414
  9. CLOZAPINE [Suspect]
     Active Substance: CLOZAPINE
     Dosage: 1 DOSAGE FORM, QD, TABLET, (AT BEDTIME 7X100MG IN MDS)
     Route: 048
  10. ACETAMINOPHEN [Suspect]
     Active Substance: ACETAMINOPHEN
     Indication: Product used for unknown indication
     Dosage: 2 DOSAGE FORM, QID (FOUR TIMES A DAY WHEN REQUIRED 32X500MG, BLADDER IRRIGATION)
     Route: 048
  11. BUSPIRONE [Suspect]
     Active Substance: BUSPIRONE HYDROCHLORIDE
     Indication: Product used for unknown indication
     Dosage: 1 DOSAGE FORM, BID (POS)
     Route: 048
  12. FUROSEMIDE [Suspect]
     Active Substance: FUROSEMIDE
     Indication: Product used for unknown indication
     Dosage: 1 DOSAGE FORM, QD (1 DAY), (EACH MORNING 7X20MG IN MDS)
     Route: 048
  13. IVABRADINE [Suspect]
     Active Substance: IVABRADINE
     Indication: Product used for unknown indication
     Dosage: 1 DOSAGE FORM, BID (POS)
     Route: 048
  14. LANTUS [Suspect]
     Active Substance: INSULIN GLARGINE
     Indication: Product used for unknown indication
     Dosage: 25 UNITS, OD (QD (WITH BREAKFAST WARD STOCK LABELLED + 2X3ML PENS))
     Route: 058
  15. POLYETHYLENE GLYCOL 3350\POTASSIUM CHLORIDE\SODIUM BICARBONATE\SODIUM [Suspect]
     Active Substance: POLYETHYLENE GLYCOL 3350\POTASSIUM CHLORIDE\SODIUM BICARBONATE\SODIUM CHLORIDE
     Indication: Constipation
     Dosage: 1 DOSAGE FORM, QD (1 DAY), (ONE SACHET ONCE A DAY WHEN REQUIRED FOR CONSTIPATION 20 SACHETS) BATH AD
     Route: 048
  16. METHENAMINE [Suspect]
     Active Substance: METHENAMINE
     Indication: Product used for unknown indication
     Dosage: 1 DOSAGE FORM, QD (1 DAY) (IN THE MORNING) (14X1GRAM IN MDS) BATH ADDITIVE
     Route: 048
  17. METHENAMINE [Suspect]
     Active Substance: METHENAMINE
     Dosage: 1 DOSAGE FORM, QD (1 DAY), (AT BEDTIME) 14X1GRAM IN MDS, BATH ADDITIVE
     Route: 048

REACTIONS (2)
  - Endocarditis [Recovered/Resolved]
  - Drug hypersensitivity [Unknown]
